FAERS Safety Report 8967891 (Version 1)
Quarter: 2012Q4

REPORT INFORMATION
  Report Type: 
  Country: US (occurrence: US)
  Receive Date: 20121218
  Receipt Date: 20121218
  Transmission Date: 20130627
  Serious: No
  Sender: FDA-Public Use
  Company Number: US-GLAXOSMITHKLINE-A0961801A

PATIENT
  Age: 65 Year
  Sex: Male

DRUGS (6)
  1. COREG CR [Suspect]
     Indication: HYPERTENSION
     Dosage: 40MG Per day
     Route: 048
     Dates: start: 20120113
  2. ENALAPRIL [Concomitant]
  3. NEXIUM [Concomitant]
  4. BABY ASPIRIN [Concomitant]
  5. COQ10 [Concomitant]
  6. GRAPESEED EXTRACT [Concomitant]

REACTIONS (2)
  - Blood pressure increased [Not Recovered/Not Resolved]
  - Headache [Unknown]
